FAERS Safety Report 15630113 (Version 3)
Quarter: 2020Q2

REPORT INFORMATION
  Report Type: Spontaneous
  Country: US (occurrence: US)
  Receive Date: 20181118
  Receipt Date: 20200629
  Transmission Date: 20200713
  Serious: No
  Sender: FDA-Public Use
  Company Number: US-JNJFOC-20181106316

PATIENT
  Sex: Male

DRUGS (7)
  1. RISPERDAL [Suspect]
     Active Substance: RISPERIDONE
     Dosage: ONE TABLET EVERY MORNING AND ONE AND HALF AT BEDTIME
     Route: 048
     Dates: start: 2002, end: 2004
  2. RISPERDAL [Suspect]
     Active Substance: RISPERIDONE
     Dosage: 0.25 MG TO 0.5 MG
     Route: 048
     Dates: start: 2005, end: 2007
  3. RISPERDAL [Suspect]
     Active Substance: RISPERIDONE
     Dosage: ONE TABLET EVERY MORNING AND ONE AND HALF AT BEDTIME
     Route: 048
     Dates: start: 2004, end: 2005
  4. RISPERDAL [Suspect]
     Active Substance: RISPERIDONE
     Indication: BIPOLAR DISORDER
     Dosage: ONE TABLET EVERY MORNING AND ONE AND HALF AT BEDTIME
     Route: 048
     Dates: start: 2002
  5. RISPERDAL [Suspect]
     Active Substance: RISPERIDONE
     Route: 048
     Dates: start: 2010
  6. RISPERDAL [Suspect]
     Active Substance: RISPERIDONE
     Dosage: ONE TABLET EVERY MORNING AND ONE AND HALF AT BEDTIME
     Route: 048
     Dates: start: 2007, end: 2008
  7. RISPERDAL [Suspect]
     Active Substance: RISPERIDONE
     Indication: BIPOLAR DISORDER
     Route: 048
     Dates: start: 2002

REACTIONS (4)
  - Emotional distress [Unknown]
  - Gynaecomastia [Unknown]
  - Weight increased [Unknown]
  - Therapy cessation [Unknown]
